FAERS Safety Report 6998382-X (Version None)
Quarter: 2010Q3

REPORT INFORMATION
  Report Type: 
  Country: None (occurrence: None)
  Receive Date: 20100920
  Receipt Date: 20100907
  Transmission Date: 20110219
  Serious: Yes (Other)
  Sender: FDA-Public Use
  Company Number: US-JNJFOC-20100202749

PATIENT
  Sex: Female
  Weight: 71.67 kg

DRUGS (11)
  1. REMICADE [Suspect]
     Indication: CROHN'S DISEASE
     Route: 042
  2. SYNTHROID [Concomitant]
     Indication: HYPOTHYROIDISM
     Dosage: DRUG STARTED PRIOR TO PREGNANCY
     Route: 048
  3. POTASSIUM [Concomitant]
  4. MAGNESIUM [Concomitant]
     Indication: CROHN'S DISEASE
     Dosage: DRUG STARTED PRIOR TO PREGNANCY
     Route: 048
  5. PRENATAL VITAMINS [Concomitant]
     Indication: PREGNANCY
     Route: 048
  6. FERROUS GLUCONATE [Concomitant]
     Indication: ANAEMIA
     Dosage: DRUG STARTED PRIOR TO PREGNANCY
     Route: 048
  7. FERROUS GLUCONATE [Concomitant]
     Indication: CROHN'S DISEASE
     Dosage: DRUG STARTED PRIOR TO PREGNANCY
     Route: 048
  8. CETIRIZINE HCL [Concomitant]
     Indication: HYPERSENSITIVITY
     Dosage: DRUG STARTED PRIOR TO PREGNANCY
     Route: 048
  9. PENTASA [Concomitant]
     Indication: CROHN'S DISEASE
     Dosage: DRUG STARTED PRIOR TO PREGNANCY
     Route: 048
  10. VITAMIN B-12 [Concomitant]
     Indication: CROHN'S DISEASE
     Dosage: DRUG STARTED PRIOR TO PREGNANCY
     Route: 030
  11. FLUOXETINE [Concomitant]

REACTIONS (2)
  - DRUG EXPOSURE DURING PREGNANCY [None]
  - THYROID NEOPLASM [None]
